FAERS Safety Report 5120503-4 (Version None)
Quarter: 2006Q4

REPORT INFORMATION
  Report Type: 
  Country: None (occurrence: None)
  Receive Date: 20061004
  Receipt Date: 20060927
  Transmission Date: 20070319
  Serious: Yes (Death, Hospitalization)
  Sender: FDA-Public Use
  Company Number: US-SANOFI-SYNTHELABO-A03200605976

PATIENT
  Sex: Female

DRUGS (10)
  1. FIORICET [Concomitant]
     Dosage: UNK
     Route: 048
  2. XANAX [Concomitant]
     Dosage: UNK
     Route: 048
  3. NASAL INHALER [Concomitant]
     Dosage: UNK
     Route: 045
  4. NASONEX [Concomitant]
     Dosage: UNK
     Route: 045
  5. SYNTHROID [Concomitant]
     Dosage: UNK
     Route: 048
  6. COMPAZINE [Concomitant]
     Dosage: UNK
     Route: 065
  7. DECADRON [Concomitant]
     Dosage: UNK
     Route: 048
  8. LEUCOVORIN CALCIUM [Suspect]
     Route: 042
     Dates: start: 20060823, end: 20060823
  9. FLUOROURACIL [Suspect]
     Route: 042
     Dates: start: 20060823, end: 20060823
  10. ELOXATIN [Suspect]
     Indication: COLORECTAL CANCER
     Route: 042
     Dates: start: 20060823, end: 20060823

REACTIONS (2)
  - PNEUMONITIS [None]
  - RESPIRATORY FAILURE [None]
